FAERS Safety Report 6061385-6 (Version None)
Quarter: 2009Q1

REPORT INFORMATION
  Report Type: 
  Country: None (occurrence: None)
  Receive Date: 20090202
  Receipt Date: 20081216
  Transmission Date: 20090719
  Serious: No
  Sender: FDA-Public Use
  Company Number: US-BAYER-200840940NA

PATIENT
  Age: 54 Year
  Sex: Female
  Weight: 83 kg

DRUGS (1)
  1. ULTRAVIST 370 [Suspect]
     Indication: ANGIOGRAM
     Dosage: TOTAL DAILY DOSE: 120 ML  UNIT DOSE: 125 ML
     Route: 042
     Dates: start: 20081216, end: 20081216

REACTIONS (2)
  - CONTRAST MEDIA ALLERGY [None]
  - URTICARIA [None]
